FAERS Safety Report 10592719 (Version 1)
Quarter: 2014Q4

REPORT INFORMATION
  Report Type: Spontaneous
  Country: US (occurrence: None)
  Receive Date: 20141117
  Receipt Date: 20141117
  Transmission Date: 20150529
  Serious: Yes (Hospitalization)
  Sender: FDA-Public Use
  Company Number: IMP_08137_2014

PATIENT
  Age: 59 Year
  Sex: Male

DRUGS (4)
  1. ALPRAZOLAM. [Suspect]
     Active Substance: ALPRAZOLAM
     Indication: PRODUCT USED FOR UNKNOWN INDICATION
  2. ALCOHOL. [Suspect]
     Active Substance: ALCOHOL
     Indication: PRODUCT USED FOR UNKNOWN INDICATION
  3. FENTANYL. [Suspect]
     Active Substance: FENTANYL
     Indication: PRODUCT USED FOR UNKNOWN INDICATION
  4. FENTANYL. [Suspect]
     Active Substance: FENTANYL
     Indication: PRODUCT USED FOR UNKNOWN INDICATION

REACTIONS (16)
  - Unresponsive to stimuli [None]
  - Myocardial infarction [None]
  - Respiratory rate decreased [None]
  - Blood alcohol increased [None]
  - Agitation [None]
  - Memory impairment [None]
  - Demyelination [None]
  - Cognitive disorder [None]
  - Leukoencephalopathy [None]
  - Hypoxia [None]
  - Pneumonia aspiration [None]
  - Acute kidney injury [None]
  - Dysarthria [None]
  - Rhabdomyolysis [None]
  - Overdose [None]
  - Respiratory acidosis [None]
